FAERS Safety Report 23121954 (Version 2)
Quarter: 2023Q4

REPORT INFORMATION
  Report Type: Spontaneous
  Country: FR (occurrence: FR)
  Receive Date: 20231030
  Receipt Date: 20231219
  Transmission Date: 20240109
  Serious: Yes (Disabling, Other)
  Sender: FDA-Public Use
  Company Number: FR-AFSSAPS-AM2023000891

PATIENT
  Age: 65 Year
  Sex: Female
  Weight: 38 kg

DRUGS (2)
  1. ROSUVASTATIN [Suspect]
     Active Substance: ROSUVASTATIN
     Indication: Blood cholesterol
     Dosage: 20 MILLIGRAM, ONCE A DAY
     Route: 048
     Dates: start: 20230616, end: 20230925
  2. KARDEGIC [Concomitant]
     Active Substance: ASPIRIN DL-LYSINE
     Indication: Product used for unknown indication
     Dosage: UNK
     Route: 065

REACTIONS (1)
  - Tendon disorder [Recovered/Resolved]

NARRATIVE: CASE EVENT DATE: 20230601
